FAERS Safety Report 7863862-1 (Version None)
Quarter: 2011Q4

REPORT INFORMATION
  Report Type: 
  Country: None (occurrence: None)
  Receive Date: 20111028
  Receipt Date: 20111018
  Transmission Date: 20120403
  Serious: No
  Sender: FDA-Public Use
  Company Number: US-BIOGENIDEC-2011BI030559

PATIENT
  Sex: Male

DRUGS (1)
  1. TYSABRI [Suspect]
     Indication: MULTIPLE SCLEROSIS
     Route: 042
     Dates: start: 20110701, end: 20110701

REACTIONS (5)
  - OEDEMA PERIPHERAL [None]
  - MASTICATION DISORDER [None]
  - URINARY INCONTINENCE [None]
  - HYPOAESTHESIA [None]
  - DEPRESSION [None]
